FAERS Safety Report 7583070-1 (Version None)
Quarter: 2011Q2

REPORT INFORMATION
  Report Type: 
  Country: None (occurrence: None)
  Receive Date: 20110627
  Receipt Date: 20110627
  Transmission Date: 20111010
  Serious: Yes (Hospitalization, Other)
  Sender: FDA-Public Use
  Company Number: None

PATIENT
  Sex: Female

DRUGS (1)
  1. PREDNISONE TAB [Suspect]
     Dosage: HALF TABLET OF 5MG TABLET IN THE MORNING PO
     Route: 048
     Dates: start: 20110324, end: 20110624

REACTIONS (9)
  - TREMOR [None]
  - MENTAL STATUS CHANGES [None]
  - MUSCULAR WEAKNESS [None]
  - ALTERED STATE OF CONSCIOUSNESS [None]
  - SKIN ATROPHY [None]
  - HEART RATE IRREGULAR [None]
  - PAIN IN EXTREMITY [None]
  - OEDEMA PERIPHERAL [None]
  - MUSCLE SPASMS [None]
